FAERS Safety Report 7045941-4 (Version None)
Quarter: 2010Q4

REPORT INFORMATION
  Report Type: 
  Country: None (occurrence: None)
  Receive Date: 20101014
  Receipt Date: 20101008
  Transmission Date: 20110411
  Serious: Yes (Other)
  Sender: FDA-Public Use
  Company Number: CN-CELGENEUS-035-20785-10100725

PATIENT

DRUGS (3)
  1. THALIDOMIDE [Suspect]
     Route: 048
  2. VINORELBINE [Suspect]
     Dosage: 25-30MG/M2
     Route: 065
  3. CISPLATIN [Suspect]
     Dosage: 70-80MG/M2
     Route: 065

REACTIONS (19)
  - ALOPECIA [None]
  - BONE MARROW FAILURE [None]
  - CONSTIPATION [None]
  - DECREASED APPETITE [None]
  - DIARRHOEA [None]
  - DISEASE PROGRESSION [None]
  - FATIGUE [None]
  - HAEMOGLOBIN DECREASED [None]
  - HEPATIC FUNCTION ABNORMAL [None]
  - LEUKOPENIA [None]
  - MALIGNANT NEOPLASM PROGRESSION [None]
  - NAUSEA [None]
  - NON-SMALL CELL LUNG CANCER [None]
  - PHLEBITIS [None]
  - PYREXIA [None]
  - RASH [None]
  - THROMBOCYTOPENIA [None]
  - VOMITING [None]
  - WEIGHT DECREASED [None]
